FAERS Safety Report 23226151 (Version 1)
Quarter: 2023Q4

REPORT INFORMATION
  Report Type: Spontaneous
  Country: IT (occurrence: IT)
  Receive Date: 20231124
  Receipt Date: 20231124
  Transmission Date: 20240110
  Serious: Yes (Other)
  Sender: FDA-Public Use
  Company Number: IT-BRISTOL-MYERS SQUIBB COMPANY-2023-164179

PATIENT
  Sex: Female

DRUGS (1)
  1. TRIAMCINOLONE ACETONIDE [Suspect]
     Active Substance: TRIAMCINOLONE ACETONIDE
     Indication: Alopecia areata
     Dosage: DOSE : 40 MG/ML;     FREQ : UNAVAILABLE
     Dates: start: 202305, end: 202310

REACTIONS (2)
  - Loss of consciousness [Unknown]
  - Condition aggravated [Unknown]
